FAERS Safety Report 8814682 (Version 3)
Quarter: 2012Q4

REPORT INFORMATION
  Report Type: Report from Study
  Country: PL (occurrence: PL)
  Receive Date: 20120928
  Receipt Date: 20121024
  Transmission Date: 20130627
  Serious: Yes (Hospitalization)
  Sender: FDA-Public Use
  Company Number: PL-CELGENEUS-129-CCAZA-12092087

PATIENT
  Age: 84 Year
  Sex: Male
  Weight: 66 kg

DRUGS (20)
  1. AZACITIDINE INJECTABLE [Suspect]
     Indication: ACUTE MYELOID LEUKEMIA
     Dosage: 134 mg
     Route: 058
     Dates: start: 20110516, end: 20110522
  2. AZACITIDINE INJECTABLE [Suspect]
     Dosage: 75 milligram/sq. meter
     Route: 058
     Dates: start: 20120827, end: 20120902
  3. MILURIT [Concomitant]
     Indication: PROPHYLAXIS
     Dosage: 200 Milligram
     Route: 048
     Dates: start: 20110711
  4. MILURIT [Concomitant]
     Dosage: 200 Milligram
     Route: 048
     Dates: start: 20120829, end: 20120901
  5. BETALOC [Concomitant]
     Indication: HEART FAILURE
     Dosage: 50 Milligram
     Route: 048
     Dates: start: 1995
  6. FUROSEMIDUM [Concomitant]
     Indication: HEART FAILURE
     Dosage: 40 Milligram
     Route: 048
     Dates: start: 1995
  7. LOZAP [Concomitant]
     Indication: HYPERTENSION
     Dosage: 50 Milligram
     Route: 048
     Dates: start: 2006
  8. LUXFEN [Concomitant]
     Indication: GLAUCOMA
     Dosage: 2 Drops
     Route: 047
     Dates: start: 2004
  9. TRUSOPT [Concomitant]
     Indication: GLAUCOMA
     Dosage: 2 Drops
     Route: 047
     Dates: start: 2004
  10. POLPRAZOL [Concomitant]
     Indication: GASTROESOPHAGEAL REFLUX
     Dosage: 20 Milligram
     Route: 048
     Dates: start: 20110504
  11. GENSULIN N [Concomitant]
     Indication: TYPE 2 DIABETES MELLITUS
     Dosage: 6 IU (International Unit)
     Route: 058
     Dates: start: 20110504
  12. ONDANSETRON [Concomitant]
     Indication: VOMITING PROPHYLAXIS
     Dosage: 8 Milligram
     Route: 041
     Dates: start: 20120827, end: 20120902
  13. SODIUM CHLORIDE [Concomitant]
     Indication: WEAKNESS
     Dosage: 500 milliliter
     Route: 041
     Dates: start: 20120828, end: 20120829
  14. SODIUM CHLORIDE [Concomitant]
     Indication: HYPERURICEMIA
     Dosage: 500 milliliter
     Route: 041
     Dates: start: 20120829, end: 20120902
  15. SODIUM CHLORIDE [Concomitant]
     Dosage: 1000 milliliter
     Route: 041
     Dates: start: 20120901, end: 20120901
  16. KETOPROFEN [Concomitant]
     Indication: CHEST PAIN
     Dosage: 50 Milligram
     Route: 041
     Dates: start: 20120831, end: 20120831
  17. CIPROFLOXACIN [Concomitant]
     Indication: ANTIBACTERIAL PROPHYLAXIS
     Dosage: 1000 Milligram
     Route: 048
     Dates: start: 20120831
  18. BISOPROLOL [Concomitant]
     Indication: CHEST PAIN
     Dosage: 5 Milligram
     Route: 048
     Dates: start: 20120901, end: 20120901
  19. AMOXICILLIN W/CLAVULANIC ACID [Concomitant]
     Indication: PLEURAL EFFUSION
     Route: 065
     Dates: start: 20120905, end: 20120912
  20. QUINAX [Concomitant]
     Indication: CATARACT
     Dosage: 1 Drops
     Route: 047
     Dates: start: 2004

REACTIONS (2)
  - Pleural effusion [Recovered/Resolved]
  - Cardiac failure [Recovered/Resolved]
